FAERS Safety Report 7207443-1 (Version None)
Quarter: 2011Q1

REPORT INFORMATION
  Report Type: 
  Country: None (occurrence: None)
  Receive Date: 20110103
  Receipt Date: 20101220
  Transmission Date: 20110831
  Serious: Yes (Other)
  Sender: FDA-Public Use
  Company Number: PHHY2010GB86504

PATIENT
  Age: 80 Year
  Sex: Female

DRUGS (6)
  1. HALOPERIDOL [Suspect]
     Indication: AGITATION
     Dosage: UNK
     Route: 048
     Dates: start: 20100820, end: 20101022
  2. CANDESARTAN CILEXETIL [Concomitant]
  3. ADCAL-D3 [Concomitant]
  4. PARACETAMOL [Concomitant]
     Dosage: 500 MG
  5. TRIMETHOPRIM [Concomitant]
  6. FUROSEMIDE [Concomitant]

REACTIONS (1)
  - DEEP VEIN THROMBOSIS [None]
